FAERS Safety Report 4489932-6 (Version None)
Quarter: 2004Q4

REPORT INFORMATION
  Report Type: 
  Country: None (occurrence: None)
  Receive Date: 20041101
  Receipt Date: 20040817
  Transmission Date: 20050328
  Serious: Yes (Other)
  Sender: FDA-Public Use
  Company Number: US-GLAXOSMITHKLINE-A0522471A

PATIENT
  Age: 23 Year
  Sex: Female
  Weight: 59.1 kg

DRUGS (3)
  1. LAMICTAL [Suspect]
     Indication: BIPOLAR II DISORDER
     Route: 048
  2. NEURONTIN [Concomitant]
     Route: 048
  3. SEROQUEL [Concomitant]
     Route: 048

REACTIONS (1)
  - GASTROENTERITIS [None]
